FAERS Safety Report 10100338 (Version 3)
Quarter: 2014Q2

REPORT INFORMATION
  Report Type: Spontaneous
  Country: NO (occurrence: NO)
  Receive Date: 20140423
  Receipt Date: 20140601
  Transmission Date: 20141212
  Serious: Yes (Other)
  Sender: FDA-Public Use
  Company Number: PHHY2014NO040178

PATIENT
  Age: 60 Year
  Sex: Male

DRUGS (5)
  1. ULTIBRO BREEZHALER [Suspect]
     Indication: CHRONIC OBSTRUCTIVE PULMONARY DISEASE
     Dosage: 1 DF, QD
     Route: 055
     Dates: start: 20140319, end: 20140326
  2. VICTOZA [Concomitant]
     Dosage: UNK UKN, BID
  3. METFORMIN [Concomitant]
  4. SIMVASTATIN [Concomitant]
  5. SELOZOK [Concomitant]

REACTIONS (4)
  - Oral discomfort [Recovered/Resolved]
  - Oropharyngeal pain [Recovered/Resolved]
  - General physical health deterioration [Unknown]
  - Drug ineffective [Unknown]
